FAERS Safety Report 5406908-2 (Version None)
Quarter: 2007Q3

REPORT INFORMATION
  Report Type: 
  Country: None (occurrence: None)
  Receive Date: 20070802
  Receipt Date: 20070719
  Transmission Date: 20080115
  Serious: Yes (Other)
  Sender: FDA-Public Use
  Company Number: 159046ISR

PATIENT
  Age: 36 Year
  Sex: Female

DRUGS (2)
  1. GABAPENTIN [Suspect]
     Indication: EPILEPSY
     Dosage: (400 MG) ORAL
     Route: 048
     Dates: start: 20020309, end: 20021009
  2. VALPROIC ACID [Suspect]
     Indication: EPILEPSY
     Dosage: (200 MG) ORAL
     Route: 048
     Dates: start: 20021009

REACTIONS (3)
  - ABORTION MISSED [None]
  - DRUG EXPOSURE DURING PREGNANCY [None]
  - PREGNANCY [None]
